FAERS Safety Report 8030542-1 (Version None)
Quarter: 2011Q4

REPORT INFORMATION
  Report Type: 
  Country: None (occurrence: None)
  Receive Date: 20111130
  Receipt Date: 20110608
  Transmission Date: 20120403
  Serious: Yes (Hospitalization, Other)
  Sender: FDA-Public Use
  Company Number: US200910004072

PATIENT
  Age: 52 Year
  Sex: Female
  Weight: 106.6 kg

DRUGS (13)
  1. GLUCOPHAGE [Concomitant]
  2. XANAX [Concomitant]
  3. FLEXERIL [Concomitant]
  4. LYRICA (PRGABALIN) [Concomitant]
  5. BYETTA [Suspect]
     Indication: TYPE 2 DIABETES MELLITUS
     Dosage: 10 UG, 2/D, SUBCUTANEOUS
     Route: 058
     Dates: start: 20070101, end: 20070301
  6. XANAX [Concomitant]
  7. WELLBUTRIN [Concomitant]
  8. GLYBURIDE [Concomitant]
  9. ULTRAM [Concomitant]
  10. EXENATIDE 10MCG PEN, DISPOSABLE DEVICE (EXENATIDE PEN (10MCG)) PEN,DIS [Concomitant]
  11. ACTOS [Concomitant]
  12. WELLBUTRIN [Concomitant]
  13. PROTONIX [Concomitant]

REACTIONS (2)
  - RENAL DISORDER [None]
  - PANCREATITIS ACUTE [None]
